FAERS Safety Report 13958518 (Version 1)
Quarter: 2017Q3

REPORT INFORMATION
  Report Type: Spontaneous
  Country: US (occurrence: US)
  Receive Date: 20170911
  Receipt Date: 20170911
  Transmission Date: 20171128
  Serious: Yes (Other)
  Sender: FDA-Public Use
  Company Number: US-ROCHE-1070106

PATIENT
  Age: 75 Year
  Sex: Male
  Weight: 68.1 kg

DRUGS (13)
  1. ALEVE [Concomitant]
     Active Substance: NAPROXEN SODIUM
     Route: 065
     Dates: start: 20101118, end: 20111013
  2. NIFEDIPINE. [Concomitant]
     Active Substance: NIFEDIPINE
     Route: 048
     Dates: start: 20110811, end: 20111013
  3. TYLENOL [Concomitant]
     Active Substance: ACETAMINOPHEN
     Route: 065
     Dates: start: 20070620, end: 20111013
  4. ASPIRIN EC [Concomitant]
     Active Substance: ASPIRIN
     Route: 048
     Dates: start: 20070418, end: 20111013
  5. CALCIUM [Concomitant]
     Active Substance: CALCIUM
     Route: 048
     Dates: start: 20070418, end: 20111013
  6. MULTIVITAMIN [Concomitant]
     Active Substance: VITAMINS
     Route: 048
     Dates: start: 20070418, end: 20111013
  7. VITAMIN C [Concomitant]
     Active Substance: ASCORBIC ACID
     Route: 048
     Dates: start: 20091106, end: 20111013
  8. MAGNESIUM OXIDE. [Concomitant]
     Active Substance: MAGNESIUM OXIDE
     Route: 048
     Dates: start: 20100602, end: 20111013
  9. DELSYM [Concomitant]
     Active Substance: DEXTROMETHORPHAN
     Dosage: 12 HRS 30 MG/5 ML PRN
     Route: 048
     Dates: start: 20101118, end: 20111013
  10. NIASPAN [Concomitant]
     Active Substance: NIACIN
     Route: 048
     Dates: start: 20090605, end: 20111013
  11. TRILIPIX [Concomitant]
     Active Substance: FENOFIBRIC ACID
     Route: 048
     Dates: start: 20090605, end: 20111013
  12. RITUXAN [Suspect]
     Active Substance: RITUXIMAB
     Indication: B-CELL LYMPHOMA
     Route: 042
     Dates: start: 201009, end: 201205
  13. CLARITIN [Concomitant]
     Active Substance: LORATADINE
     Route: 065
     Dates: start: 20091127, end: 20111013

REACTIONS (2)
  - Herpes zoster [Recovered/Resolved]
  - Disease recurrence [Unknown]

NARRATIVE: CASE EVENT DATE: 20120507
